FAERS Safety Report 18631887 (Version 1)
Quarter: 2020Q4

REPORT INFORMATION
  Report Type: Spontaneous
  Country: US (occurrence: US)
  Receive Date: 20201218
  Receipt Date: 20201218
  Transmission Date: 20210114
  Serious: No
  Sender: FDA-Public Use
  Company Number: US-JNJFOC-20201224090

PATIENT
  Age: 93 Year
  Sex: Male
  Weight: 60.4 kg

DRUGS (1)
  1. ULTRAM [Suspect]
     Active Substance: TRAMADOL HYDROCHLORIDE
     Indication: PAIN
     Route: 065

REACTIONS (3)
  - Somnolence [Unknown]
  - Lethargy [Unknown]
  - Pain [Unknown]
